FAERS Safety Report 7476815-2 (Version None)
Quarter: 2011Q2

REPORT INFORMATION
  Report Type: 
  Country: None (occurrence: None)
  Receive Date: 20110512
  Receipt Date: 20110509
  Transmission Date: 20111010
  Serious: Yes (Disabling, Other)
  Sender: FDA-Public Use
  Company Number: US-PFIZER INC-2011099527

PATIENT
  Sex: Male
  Weight: 77.1 kg

DRUGS (5)
  1. PRASUGREL [Concomitant]
     Dosage: 10 MG, DAILY
  2. FUROSEMIDE [Concomitant]
     Dosage: 20 MG, DAILY
  3. RAMIPRIL [Concomitant]
     Dosage: 2.5 MG, DAILY
  4. LIPITOR [Suspect]
     Indication: MYOCARDIAL INFARCTION
     Dosage: 80 MG, 1X/DAY
     Route: 048
     Dates: start: 20110310
  5. METOPROLOL [Concomitant]
     Dosage: 25 MG, DAILY

REACTIONS (2)
  - JOINT SWELLING [None]
  - ARTHROPATHY [None]
